FAERS Safety Report 6876354-3 (Version None)
Quarter: 2010Q3

REPORT INFORMATION
  Report Type: 
  Country: None (occurrence: None)
  Receive Date: 20100727
  Receipt Date: 20070702
  Transmission Date: 20110219
  Serious: Yes (Hospitalization, Other)
  Sender: FDA-Public Use
  Company Number: US-PFIZER INC-2006111940

PATIENT
  Sex: Female
  Weight: 98.4 kg

DRUGS (7)
  1. CELEBREX [Suspect]
     Indication: RHEUMATOID ARTHRITIS
     Dates: start: 19991007, end: 20020719
  2. VIOXX [Suspect]
     Indication: RHEUMATOID ARTHRITIS
     Route: 048
     Dates: start: 20020414
  3. VIOXX [Suspect]
     Indication: OSTEOARTHRITIS
  4. ACETAMINOPHEN AND HYDROCODONE BITARTRATE [Concomitant]
     Dates: start: 19991029, end: 20050501
  5. ZOLOFT [Concomitant]
     Dates: start: 19990528
  6. PREMPRO [Concomitant]
     Dates: start: 20020213, end: 20021013
  7. THEOPHYLLINE [Concomitant]
     Dates: start: 19990101

REACTIONS (1)
  - CEREBROVASCULAR ACCIDENT [None]
